FAERS Safety Report 24835229 (Version 1)
Quarter: 2025Q1

REPORT INFORMATION
  Report Type: Spontaneous
  Country: FR (occurrence: FR)
  Receive Date: 20250113
  Receipt Date: 20250113
  Transmission Date: 20250409
  Serious: Yes (Hospitalization, Other)
  Sender: Haleon PLC
  Company Number: FR-HALEON-2221113

PATIENT
  Age: 12 Month
  Sex: Male

DRUGS (1)
  1. ACETAMINOPHEN [Suspect]
     Active Substance: ACETAMINOPHEN
     Indication: Product used for unknown indication
     Route: 054

REACTIONS (11)
  - Enterocolitis [Recovered/Resolved]
  - Asthenia [Recovered/Resolved]
  - Drug hypersensitivity [Recovered/Resolved]
  - Pallor [Recovered/Resolved]
  - Hyperleukocytosis [Recovered/Resolved]
  - Respiratory alkalosis [Recovered/Resolved]
  - Methaemoglobinaemia [Recovered/Resolved]
  - Tachycardia [Recovered/Resolved]
  - Vomiting [Recovered/Resolved]
  - Irritability [Recovered/Resolved]
  - Gastrointestinal disorder [Recovered/Resolved]
